FAERS Safety Report 12870697 (Version 1)
Quarter: 2016Q4

REPORT INFORMATION
  Report Type: Spontaneous
  Country: GB (occurrence: GB)
  Receive Date: 20161021
  Receipt Date: 20161021
  Transmission Date: 20170207
  Serious: Yes (Other)
  Sender: FDA-Public Use
  Company Number: GB-BAYER-2016-199738

PATIENT
  Age: 35 Year
  Sex: Female
  Weight: 91.16 kg

DRUGS (1)
  1. MIRENA [Suspect]
     Active Substance: LEVONORGESTREL
     Indication: CONTRACEPTION
     Dosage: 20 MCG/24HR, CONT
     Route: 015
     Dates: start: 20160818, end: 20161003

REACTIONS (15)
  - Irritability [Unknown]
  - Night sweats [Not Recovered/Not Resolved]
  - Vaginal haemorrhage [Not Recovered/Not Resolved]
  - Anger [Unknown]
  - Nausea [Unknown]
  - Fatigue [Unknown]
  - Pruritus [Unknown]
  - Loss of libido [Unknown]
  - Mood swings [Unknown]
  - Anxiety [Unknown]
  - Abnormal weight gain [Unknown]
  - Abdominal pain lower [Not Recovered/Not Resolved]
  - Headache [Unknown]
  - Affect lability [Unknown]
  - Syncope [Unknown]

NARRATIVE: CASE EVENT DATE: 20160818
